FAERS Safety Report 5326349-6 (Version None)
Quarter: 2007Q2

REPORT INFORMATION
  Report Type: 
  Country: None (occurrence: None)
  Receive Date: 20070516
  Receipt Date: 20070514
  Transmission Date: 20071010
  Serious: Yes (Hospitalization)
  Sender: FDA-Public Use
  Company Number: A0651280A

PATIENT

DRUGS (1)
  1. VALTREX [Suspect]
     Dosage: 4MG SINGLE DOSE
     Dates: start: 20070501, end: 20070501

REACTIONS (2)
  - MEDICATION ERROR [None]
  - RENAL DISORDER [None]
